FAERS Safety Report 7994910-6 (Version None)
Quarter: 2011Q4

REPORT INFORMATION
  Report Type: 
  Country: None (occurrence: None)
  Receive Date: 20111220
  Receipt Date: 20111215
  Transmission Date: 20120403
  Serious: Yes (Other)
  Sender: FDA-Public Use
  Company Number: GB-PFIZER INC-2011272974

PATIENT
  Age: 52 Year
  Sex: Male

DRUGS (1)
  1. LYRICA [Suspect]
     Indication: ANXIETY DISORDER
     Dosage: UNK

REACTIONS (3)
  - EUPHORIC MOOD [None]
  - THINKING ABNORMAL [None]
  - ABNORMAL BEHAVIOUR [None]
